FAERS Safety Report 9267110 (Version 3)
Quarter: 2013Q2

REPORT INFORMATION
  Report Type: Spontaneous
  Country: US (occurrence: US)
  Receive Date: 20130502
  Receipt Date: 20130621
  Transmission Date: 20140414
  Serious: Yes (Hospitalization)
  Sender: FDA-Public Use
  Company Number: US-009507513-1304USA016289

PATIENT
  Age: 20 Year
  Sex: Female
  Weight: 58.96 kg

DRUGS (3)
  1. IMPLANON [Suspect]
     Indication: CONTRACEPTION
     Dosage: 1 ROD, UNK
     Route: 059
     Dates: start: 20120315, end: 20121227
  2. NEURONTIN [Concomitant]
     Indication: NEURALGIA
     Dosage: 300 MG, HS
     Route: 048
     Dates: start: 201212
  3. PRILOSEC [Concomitant]
     Indication: GASTROOESOPHAGEAL REFLUX DISEASE
     Dosage: 20 MG, DAILY, AS NEEDED
     Route: 048

REACTIONS (5)
  - Subclavian vein thrombosis [Recovered/Resolved]
  - Menometrorrhagia [Unknown]
  - Iron deficiency anaemia [Unknown]
  - Upper respiratory tract infection [Unknown]
  - Chest pain [Unknown]
